FAERS Safety Report 7361323-X (Version None)
Quarter: 2011Q1

REPORT INFORMATION
  Report Type: 
  Country: None (occurrence: None)
  Receive Date: 20110318
  Receipt Date: 20110316
  Transmission Date: 20110831
  Serious: Yes (Other)
  Sender: FDA-Public Use
  Company Number: B0699739A

PATIENT
  Sex: Male
  Weight: 103.2 kg

DRUGS (10)
  1. AVANDIA [Suspect]
     Indication: DIABETES MELLITUS
     Route: 048
     Dates: end: 20100101
  2. MICARDIS [Concomitant]
  3. AVANDAMET [Suspect]
     Indication: DIABETES MELLITUS
     Route: 048
  4. TRICOR [Concomitant]
  5. CRESTOR [Concomitant]
  6. GLUCOPHAGE [Concomitant]
  7. NORVASC [Concomitant]
  8. ALTACE [Concomitant]
  9. LANTUS [Concomitant]
  10. GLUCOPHAGE [Concomitant]

REACTIONS (4)
  - LIVER INJURY [None]
  - HYPERLIPIDAEMIA [None]
  - FLUID RETENTION [None]
  - HYPERTENSION [None]
